FAERS Safety Report 8395362-7 (Version None)
Quarter: 2012Q2

REPORT INFORMATION
  Report Type: 
  Country: None (occurrence: None)
  Receive Date: 20120530
  Receipt Date: 20120521
  Transmission Date: 20120825
  Serious: Yes (Hospitalization, Other)
  Sender: FDA-Public Use
  Company Number: JP-VERTEX PHARMACEUTICALS INC.-AE-2012-006080

PATIENT
  Age: 62 Year
  Sex: Female

DRUGS (9)
  1. RIBAVIRIN [Concomitant]
     Indication: HEPATITIS C
     Route: 048
     Dates: start: 20120106, end: 20120215
  2. TELAVIC (TELAPREVIR) [Suspect]
     Route: 048
     Dates: start: 20120221, end: 20120301
  3. TALION OD [Concomitant]
     Route: 048
     Dates: start: 20120105, end: 20120219
  4. RIBAVIRIN [Concomitant]
     Route: 048
     Dates: start: 20120216, end: 20120301
  5. RIBAVIRIN [Concomitant]
     Route: 048
     Dates: start: 20120322
  6. PEGINTERFERON ALFA-2B [Concomitant]
     Route: 051
     Dates: start: 20120223, end: 20120229
  7. TELAVIC (TELAPREVIR) [Suspect]
     Indication: HEPATITIS C
     Route: 048
     Dates: start: 20120106, end: 20120220
  8. PEGINTERFERON ALFA-2B [Concomitant]
     Indication: HEPATITIS C
     Route: 051
     Dates: start: 20120106, end: 20120222
  9. PEGINTERFERON ALFA-2B [Concomitant]
     Route: 051
     Dates: start: 20120315

REACTIONS (4)
  - DECREASED APPETITE [None]
  - BRONCHITIS [None]
  - NAUSEA [None]
  - HAEMOGLOBIN DECREASED [None]
